FAERS Safety Report 17842788 (Version 1)
Quarter: 2020Q2

REPORT INFORMATION
  Report Type: Spontaneous
  Country: US (occurrence: US)
  Receive Date: 20200530
  Receipt Date: 20200530
  Transmission Date: 20200714
  Serious: Yes (Other)
  Sender: FDA-Public Use
  Company Number: US-GLAND PHARMA LIMITED-2085301

PATIENT
  Sex: Female
  Weight: 69 kg

DRUGS (2)
  1. VANCOMYCIN HYDROCHLORIDE. [Suspect]
     Active Substance: VANCOMYCIN HYDROCHLORIDE
     Indication: OSTEOMYELITIS BACTERIAL
  2. PIPERACILLIN SODIUM, TAZOBACTAM?SODIUM [Concomitant]

REACTIONS (2)
  - Pyrexia [Unknown]
  - Leukopenia [Unknown]
